FAERS Safety Report 7400964-8 (Version None)
Quarter: 2011Q2

REPORT INFORMATION
  Report Type: 
  Country: None (occurrence: None)
  Receive Date: 20110407
  Receipt Date: 20110401
  Transmission Date: 20111010
  Serious: Yes (Other)
  Sender: FDA-Public Use
  Company Number: US-PFIZER INC-2011073337

PATIENT
  Sex: Female
  Weight: 37.642 kg

DRUGS (3)
  1. IBUPROFEN [Suspect]
     Dosage: 380 MG DAILY
     Dates: start: 20110302, end: 20110302
  2. IBUPROFEN [Suspect]
     Dosage: UNK
     Dates: start: 20010101
  3. IBUPROFEN [Suspect]
     Dosage: 400 MG 3 DOSES
     Dates: start: 20110303, end: 20110304

REACTIONS (5)
  - SHOCK [None]
  - URTICARIA [None]
  - RASH [None]
  - DRUG HYPERSENSITIVITY [None]
  - DYSPNOEA [None]
